FAERS Safety Report 9037099 (Version 2)
Quarter: 2013Q2

REPORT INFORMATION
  Report Type: Spontaneous
  Country: JP (occurrence: JP)
  Receive Date: 20130129
  Receipt Date: 20130604
  Transmission Date: 20140414
  Serious: Yes (Other)
  Sender: FDA-Public Use
  Company Number: JP-MERCK-1301JPN012218

PATIENT
  Age: 61 Year
  Sex: Male

DRUGS (1)
  1. GLACTIV [Suspect]
     Indication: TYPE 2 DIABETES MELLITUS
     Dosage: 50 MG, QD
     Route: 048
     Dates: end: 201301

REACTIONS (1)
  - Lung disorder [Not Recovered/Not Resolved]
